FAERS Safety Report 18520589 (Version 8)
Quarter: 2021Q4

REPORT INFORMATION
  Report Type: Spontaneous
  Country: JP (occurrence: JP)
  Receive Date: 20201118
  Receipt Date: 20211110
  Transmission Date: 20220304
  Serious: Yes (Hospitalization, Other)
  Sender: FDA-Public Use
  Company Number: JP-BRISTOL-MYERS SQUIBB COMPANY-BMS-2020-057301

PATIENT
  Age: 57 Year
  Sex: Female
  Weight: 37.3 kg

DRUGS (20)
  1. OPDIVO [Suspect]
     Active Substance: NIVOLUMAB
     Indication: Metastatic renal cell carcinoma
     Dosage: 240 MILLIGRAM
     Route: 041
     Dates: start: 20200518, end: 20200518
  2. OPDIVO [Suspect]
     Active Substance: NIVOLUMAB
     Dosage: 240 MILLIGRAM
     Route: 041
     Dates: start: 20200608, end: 20200608
  3. OPDIVO [Suspect]
     Active Substance: NIVOLUMAB
     Dosage: 240 MILLIGRAM
     Route: 041
     Dates: start: 20200615, end: 20200615
  4. YERVOY [Suspect]
     Active Substance: IPILIMUMAB
     Indication: Renal cancer
     Dosage: 50 MILLIGRAM
     Route: 041
     Dates: start: 20200518, end: 20200518
  5. YERVOY [Suspect]
     Active Substance: IPILIMUMAB
     Dosage: 50 MILLIGRAM
     Route: 041
     Dates: start: 20200608, end: 20200608
  6. YERVOY [Suspect]
     Active Substance: IPILIMUMAB
     Dosage: 50 MILLIGRAM
     Route: 041
     Dates: start: 20200615, end: 20200615
  7. LANSOPRAZOLE [Suspect]
     Active Substance: LANSOPRAZOLE
     Indication: Renal cancer
     Dosage: 15 MILLIGRAM, QD
     Route: 048
     Dates: start: 20200423, end: 20200628
  8. LANSOPRAZOLE [Suspect]
     Active Substance: LANSOPRAZOLE
     Dosage: 15 MILLIGRAM, QD
     Route: 048
     Dates: start: 20200708, end: 20200713
  9. SUTENT [Suspect]
     Active Substance: SUNITINIB MALATE
     Indication: Metastatic renal cell carcinoma
     Dosage: 25 MG, 2-WEEK-ON/1-WEEK-OFF
     Route: 065
     Dates: start: 20200811, end: 20200924
  10. REBAMIPIDE [Concomitant]
     Active Substance: REBAMIPIDE
     Indication: Product used for unknown indication
     Dosage: 100 MILLIGRAM, TID
     Route: 048
     Dates: start: 20200529, end: 20200628
  11. ELIQUIS [Concomitant]
     Active Substance: APIXABAN
     Indication: Deep vein thrombosis
     Dosage: 5 MILLIGRAM, BID
     Route: 048
     Dates: start: 20200515, end: 20200628
  12. ELIQUIS [Concomitant]
     Active Substance: APIXABAN
     Dosage: 10 MILLIGRAM, Q12H
     Route: 048
     Dates: start: 20200612, end: 20200628
  13. MAGNESIUM OXIDE [Concomitant]
     Active Substance: MAGNESIUM OXIDE
     Indication: Renal cancer
     Dosage: 250 MILLIGRAM, TID
     Route: 048
     Dates: start: 20200524, end: 20200628
  14. MAGNESIUM OXIDE [Concomitant]
     Active Substance: MAGNESIUM OXIDE
     Dosage: 250 MILLIGRAM, TID
     Route: 048
     Dates: start: 20200728
  15. LOXOPROFEN SODIUM [Concomitant]
     Active Substance: LOXOPROFEN SODIUM
     Indication: Renal cancer
     Dosage: 60 MILLIGRAM, TID
     Route: 048
     Dates: start: 20200423, end: 20200528
  16. LOXOPROFEN SODIUM [Concomitant]
     Active Substance: LOXOPROFEN SODIUM
     Dosage: 60 MILLIGRAM, PRN
     Route: 048
     Dates: start: 20200529, end: 20200717
  17. LOXOPROFEN SODIUM [Concomitant]
     Active Substance: LOXOPROFEN SODIUM
     Dosage: 60 MILLIGRAM, TID
     Route: 048
     Dates: start: 20200718
  18. AMOXICILLIN TRIHYDRATE [Concomitant]
     Active Substance: AMOXICILLIN
     Indication: Prophylaxis
     Dosage: 250 MILLIGRAM, TID
     Route: 048
     Dates: start: 20200526, end: 20200613
  19. AZULENE [SODIUM GUALENATE HYDRATE] [Concomitant]
     Indication: Prophylaxis
     Dosage: UNK,4-6 DROPS, GARGLE (5 TIMES A DAY)
     Route: 002
     Dates: start: 20200526
  20. UNSPECIFIED INGREDIENT [Concomitant]
     Active Substance: UNSPECIFIED INGREDIENT
     Indication: Product used for unknown indication
     Dosage: UNK
     Route: 065

REACTIONS (16)
  - Diarrhoea [Recovered/Resolved]
  - Cancer pain [Not Recovered/Not Resolved]
  - Pyrexia [Recovered/Resolved]
  - Colitis microscopic [Recovering/Resolving]
  - Vomiting [Recovering/Resolving]
  - Nausea [Recovering/Resolving]
  - Gastroenteritis staphylococcal [Recovering/Resolving]
  - Enterococcal infection [Recovering/Resolving]
  - Colitis [Recovering/Resolving]
  - Malaise [Recovering/Resolving]
  - Haemoglobin decreased [Recovering/Resolving]
  - Pancytopenia [Recovering/Resolving]
  - Enterocolitis bacterial [Recovering/Resolving]
  - Malignant neoplasm progression [Unknown]
  - Metastases to bone [Unknown]
  - Spinal cord compression [Unknown]

NARRATIVE: CASE EVENT DATE: 20200616
